FAERS Safety Report 18388604 (Version 1)
Quarter: 2020Q4

REPORT INFORMATION
  Report Type: Spontaneous
  Country: US (occurrence: US)
  Receive Date: 20201015
  Receipt Date: 20201015
  Transmission Date: 20210114
  Serious: No
  Sender: FDA-Public Use
  Company Number: US-IPSEN BIOPHARMACEUTICALS, INC.-2020-18873

PATIENT
  Age: 59 Year
  Sex: Female

DRUGS (1)
  1. SOMATULINE DEPOT [Suspect]
     Active Substance: LANREOTIDE ACETATE
     Indication: NEUROENDOCRINE TUMOUR
     Route: 065
     Dates: start: 2018

REACTIONS (4)
  - Acarodermatitis [Not Recovered/Not Resolved]
  - Injection site pain [Unknown]
  - Abdominal distension [Unknown]
  - Injection site mass [Unknown]

NARRATIVE: CASE EVENT DATE: 202008
